FAERS Safety Report 4872697-3 (Version None)
Quarter: 2005Q4

REPORT INFORMATION
  Report Type: 
  Country: None (occurrence: None)
  Receive Date: 20051227
  Receipt Date: 20051213
  Transmission Date: 20060501
  Serious: Yes (Hospitalization)
  Sender: FDA-Public Use
  Company Number: THYM-10810

PATIENT
  Sex: Male

DRUGS (5)
  1. THYMOGLOBULIN [Suspect]
     Indication: KIDNEY TRANSPLANT REJECTION
  2. RAPAMUNE [Concomitant]
  3. CELLCEPT [Concomitant]
  4. VALGANCICLOVIR [Concomitant]
  5. BACTRIM [Concomitant]

REACTIONS (8)
  - CHILLS [None]
  - CONTUSION [None]
  - DIALYSIS [None]
  - DYSPNOEA [None]
  - LOSS OF CONSCIOUSNESS [None]
  - OEDEMA PERIPHERAL [None]
  - THROMBOCYTOPENIA [None]
  - VOMITING [None]
